FAERS Safety Report 25285395 (Version 2)
Quarter: 2025Q2

REPORT INFORMATION
  Report Type: Spontaneous
  Country: DE (occurrence: DE)
  Receive Date: 20250509
  Receipt Date: 20250520
  Transmission Date: 20250717
  Serious: Yes (Other)
  Sender: AUROBINDO
  Company Number: DE-SANDOZ-SDZ2025DE025158

PATIENT
  Sex: Female

DRUGS (18)
  1. AMLODIPINE [Suspect]
     Active Substance: AMLODIPINE BESYLATE
     Indication: Product used for unknown indication
     Dosage: 5 MILLIGRAM, ONCE A DAY(5 MG, QD, MORNING, (BEFORE CAR-T CELL THERAPY)
     Route: 065
     Dates: start: 202401
  2. CANDESARTAN [Suspect]
     Active Substance: CANDESARTAN
     Indication: Product used for unknown indication
     Dosage: 32 MILLIGRAM, ONCE A DAY16 MG, BID, MORNING + EVENING, (BEFORE CAR-T CELL THERAPY)
     Route: 065
     Dates: start: 202401
  3. PANTOPRAZOLE SODIUM [Suspect]
     Active Substance: PANTOPRAZOLE SODIUM
     Indication: Product used for unknown indication
     Dosage: 20 MILLIGRAM, ONCE A DAY(20 MG, QD, MORNING (BEFORE CAR-T CELL THERAPY)
     Route: 065
     Dates: start: 202401
  4. PANTOPRAZOLE SODIUM [Suspect]
     Active Substance: PANTOPRAZOLE SODIUM
     Dosage: 40 MILLIGRAM, ONCE A DAY(40 MG, QD, MORNING (AFTER CAR-T CELL THERAPY)
     Route: 065
     Dates: start: 202409
  5. BELIMUMAB [Suspect]
     Active Substance: BELIMUMAB
     Indication: Product used for unknown indication
     Dosage: 200 MILLIGRAM, EVERY WEEKQW, (BEFORE CAR-T CELL THERAPY)
     Route: 065
     Dates: start: 202401
  6. BENLYSTA [Suspect]
     Active Substance: BELIMUMAB
     Indication: Product used for unknown indication
     Route: 065
     Dates: start: 202201
  7. CYCLOSPORINE [Suspect]
     Active Substance: CYCLOSPORINE
     Indication: Product used for unknown indication
     Route: 065
     Dates: start: 202201
  8. CYCLOSPORINE [Suspect]
     Active Substance: CYCLOSPORINE
     Route: 065
     Dates: start: 202401
  9. CHOLECALCIFEROL [Suspect]
     Active Substance: CHOLECALCIFEROL
     Indication: Product used for unknown indication
     Dosage: 20000 INTERNATIONAL UNIT, ONCE A DAYMORNING (AFTER CAR T-CELL THERAPY)
     Route: 065
     Dates: start: 202409
  10. CHOLECALCIFEROL [Suspect]
     Active Substance: CHOLECALCIFEROL
     Indication: Product used for unknown indication
     Dosage: 20 MILLIGRAM, EVERY WEEK(QW, MORNING, OILY SOLUTION, BEFORE CAR-T CELL THERAPY)
     Route: 065
     Dates: start: 202401
  11. DAPAGLIFLOZIN [Suspect]
     Active Substance: DAPAGLIFLOZIN
     Indication: Product used for unknown indication
     Dosage: 10 MILLIGRAM, ONCE A DAY(10 MG, QD, MORNING, (BEFORE CAR-T CELL THERAPY)
     Route: 065
     Dates: start: 202401
  12. DAPAGLIFLOZIN [Suspect]
     Active Substance: DAPAGLIFLOZIN
     Dosage: 10 MILLIGRAM, ONCE A DAY(10 MG, QD, MORNING, (BEFORE CAR-T CELL THERAPY)
     Route: 065
     Dates: start: 202409
  13. FERRO-SANOL DUODENAL [Suspect]
     Active Substance: FERROUS GLYCINE SULFATE
     Indication: Product used for unknown indication
     Dosage: 100 MILLIGRAM, ONCE A DAY(MORNING (AFTER CAR T-CELL THERAPY)
     Route: 065
     Dates: start: 202409
  14. FOLIC ACID [Suspect]
     Active Substance: FOLIC ACID
     Indication: Product used for unknown indication
     Dosage: 5 MILLIGRAM, ONCE A DAY (AFTER CAR-T CELL THERAPY)
     Route: 065
     Dates: start: 202409
  15. PREDNISOLONE [Suspect]
     Active Substance: PREDNISOLONE
     Indication: Pain
     Dosage: 17.5 MILLIGRAM, ONCE A DAY
     Route: 065
     Dates: start: 2019
  16. PREDNISOLONE [Suspect]
     Active Substance: PREDNISOLONE
     Route: 065
     Dates: start: 202112, end: 202201
  17. PREDNISOLONE [Suspect]
     Active Substance: PREDNISOLONE
     Dosage: 5 MILLIGRAM, ONCE A DAY (MORNING (BEFORE CAR-T CELL THERAPY)
     Route: 065
     Dates: start: 202401
  18. MYCOPHENOLATE MOFETIL [Concomitant]
     Active Substance: MYCOPHENOLATE MOFETIL
     Indication: Product used for unknown indication
     Route: 065
     Dates: start: 202203

REACTIONS (9)
  - Systemic lupus erythematosus [Unknown]
  - Lupus nephritis [Unknown]
  - Nephrotic syndrome [Unknown]
  - Neutropenia [Recovered/Resolved]
  - Vasculitis [Unknown]
  - Raynaud^s phenomenon [Unknown]
  - Pain [Unknown]
  - Alopecia [Unknown]
  - Nausea [Unknown]

NARRATIVE: CASE EVENT DATE: 20210101
